FAERS Safety Report 15849192 (Version 1)
Quarter: 2019Q1

REPORT INFORMATION
  Report Type: Spontaneous
  Country: DE (occurrence: DE)
  Receive Date: 20190121
  Receipt Date: 20190121
  Transmission Date: 20190417
  Serious: Yes (Other)
  Sender: FDA-Public Use
  Company Number: DE-009507513-1901DEU006196

PATIENT
  Age: 52 Year
  Sex: Female

DRUGS (4)
  1. PEMETREXED DISODIUM [Concomitant]
     Active Substance: PEMETREXED DISODIUM
  2. KEYTRUDA [Suspect]
     Active Substance: PEMBROLIZUMAB
     Indication: NON-SMALL CELL LUNG CANCER
     Dosage: UNK
  3. KEYTRUDA [Suspect]
     Active Substance: PEMBROLIZUMAB
     Indication: ADENOCARCINOMA
  4. PLATINUM [Concomitant]
     Active Substance: PLATINUM

REACTIONS (3)
  - Malignant neoplasm progression [Unknown]
  - Osteomyelitis [Unknown]
  - Pain [Unknown]
